FAERS Safety Report 8176782-2 (Version None)
Quarter: 2012Q1

REPORT INFORMATION
  Report Type: 
  Country: None (occurrence: None)
  Receive Date: 20120228
  Receipt Date: 20120217
  Transmission Date: 20120608
  Serious: Yes (Hospitalization)
  Sender: FDA-Public Use
  Company Number: 2012MA002356

PATIENT
  Age: 81 Year
  Sex: Female

DRUGS (7)
  1. CITALOPRAM [Concomitant]
  2. ACYCLOVIR [Suspect]
     Indication: HERPES ZOSTER
     Dosage: 800 MG;5XQD;
  3. MIRTAZAPINE [Concomitant]
  4. LANSOPRAZOLE [Concomitant]
  5. IMODIUM [Concomitant]
  6. ALENDRONIC ACID [Concomitant]
  7. CALCIUM [Concomitant]

REACTIONS (4)
  - HALLUCINATION [None]
  - NIGHTMARE [None]
  - APHASIA [None]
  - EPISTAXIS [None]
